FAERS Safety Report 7729662-8 (Version None)
Quarter: 2011Q3

REPORT INFORMATION
  Report Type: 
  Country: None (occurrence: None)
  Receive Date: 20110901
  Receipt Date: 20110901
  Transmission Date: 20111222
  Serious: No
  Sender: FDA-Public Use
  Company Number: None

PATIENT
  Sex: Female
  Weight: 78.5 kg

DRUGS (6)
  1. VINCRISTINE SULFATE [Suspect]
     Dosage: 3.04 MG
  2. RITUXIMAB (MOAB C2B8 ANTI CD20, CHIMERIC) [Suspect]
     Dosage: 716 MG
  3. DOXORUBICIN HYDROCHLORIDE [Suspect]
     Dosage: 76 MG
  4. ETOPOSIDE [Suspect]
     Dosage: 384 MG
  5. CYCLOPHOSPHAMIDE [Suspect]
     Dosage: 1433 MG
  6. PREDNISONE [Suspect]
     Dosage: 575 MG

REACTIONS (1)
  - BLOOD URIC ACID INCREASED [None]
